FAERS Safety Report 9163969 (Version 1)
Quarter: 2013Q1

REPORT INFORMATION
  Report Type: Spontaneous
  Country: US (occurrence: US)
  Receive Date: 20130314
  Receipt Date: 20130314
  Transmission Date: 20140127
  Serious: Yes (Congenital Anomaly)
  Sender: FDA-Public Use
  Company Number: US-FRI-1000043291

PATIENT
  Age: 0 Year
  Sex: Female

DRUGS (2)
  1. LEXAPRO [Suspect]
     Dates: end: 20080401
  2. CELEXA [Suspect]
     Dates: end: 20080401

REACTIONS (2)
  - Cleft lip [Not Recovered/Not Resolved]
  - Cleft palate [Not Recovered/Not Resolved]
